FAERS Safety Report 6664718-2 (Version None)
Quarter: 2010Q1

REPORT INFORMATION
  Report Type: 
  Country: None (occurrence: None)
  Receive Date: 20100330
  Receipt Date: 20100107
  Transmission Date: 20100710
  Serious: Yes (Hospitalization)
  Sender: FDA-Public Use
  Company Number: 6057149

PATIENT
  Age: 89 Year
  Sex: Female

DRUGS (9)
  1. LEVOTHYROXINE SODIUM [Suspect]
     Indication: HYPOTHYROIDISM
     Dosage: 1 DOSAGE FORMS
     Route: 048
  2. PREVISCAN (20 MG, TABLET) (FLUINDIONE) [Suspect]
     Indication: ATRIAL FIBRILLATION
     Dosage: 0.5 DF ON WEDNESDAY AND SUNDAY IN THE EVENING, 0.25 DF IN THE EVENING THE OTHER DAYS
     Route: 048
     Dates: end: 20091008
  3. PROZAC [Suspect]
     Indication: DEPRESSION
     Dosage: 2 DOSAGE FORMS
     Route: 048
  4. BROMAZEPAM (BROMAZEPAM) [Concomitant]
  5. PERINDOPRIL ERBUMINE [Concomitant]
  6. MIANSERIN (MIANSERIN) [Concomitant]
  7. MODOPAR (LEVODOPA, BENSERAZIDE) [Concomitant]
  8. POLYETHYLENE GLYCOL [Concomitant]
  9. OSTRAM (CALCIUM PHOSPHATE) [Concomitant]

REACTIONS (3)
  - ABDOMINAL WALL HAEMATOMA [None]
  - CARDIO-RESPIRATORY ARREST [None]
  - DRUG INTERACTION [None]
